FAERS Safety Report 9237093 (Version 2)
Quarter: 2013Q2

REPORT INFORMATION
  Report Type: Spontaneous
  Country: US (occurrence: US)
  Receive Date: 20130417
  Receipt Date: 20130419
  Transmission Date: 20140414
  Serious: Yes (Other)
  Sender: FDA-Public Use
  Company Number: CHPA2013US006359

PATIENT
  Age: 51 Year
  Sex: Male

DRUGS (5)
  1. PREVACID 24HR 15MG [Suspect]
     Indication: ULCER
     Dosage: 15 MG, QD
     Route: 048
     Dates: end: 20130416
  2. PREVACID 24HR 15MG [Suspect]
     Indication: GASTROOESOPHAGEAL REFLUX DISEASE
  3. PRILOSEC [Concomitant]
  4. TAGAMET [Concomitant]
  5. NEXIUM 1-2-3 [Concomitant]

REACTIONS (14)
  - Brain neoplasm [Recovering/Resolving]
  - Cerebral thrombosis [Recovering/Resolving]
  - Gun shot wound [Recovered/Resolved]
  - Visual impairment [Recovering/Resolving]
  - Thinking abnormal [Recovering/Resolving]
  - Memory impairment [Recovering/Resolving]
  - Activities of daily living impaired [Recovering/Resolving]
  - Insomnia [Unknown]
  - Disease recurrence [Recovered/Resolved]
  - Abdominal pain upper [Recovered/Resolved]
  - Back pain [Not Recovered/Not Resolved]
  - Off label use [Unknown]
  - Therapeutic response unexpected [Unknown]
  - Incorrect drug administration duration [Unknown]
